FAERS Safety Report 18860139 (Version 4)
Quarter: 2021Q2

REPORT INFORMATION
  Report Type: Report from Study
  Country: US (occurrence: US)
  Receive Date: 20210208
  Receipt Date: 20210629
  Transmission Date: 20210717
  Serious: Yes (Hospitalization)
  Sender: FDA-Public Use
  Company Number: US-TAKEDA-2021TUS004878

PATIENT
  Age: 78 Year
  Sex: Female
  Weight: 96 kg

DRUGS (29)
  1. HUMAN IMMUNOGLOBULIN; HYALURONIDASE [Suspect]
     Active Substance: HUMAN IMMUNOGLOBULIN G\HYALURONIDASE RECOMBINANT HUMAN
     Indication: IMMUNODEFICIENCY COMMON VARIABLE
     Dosage: 30 GRAM, Q4WEEKS
     Route: 058
     Dates: start: 20210129
  2. SPIRIVA [Concomitant]
     Active Substance: TIOTROPIUM BROMIDE MONOHYDRATE
  3. AZOPT [Concomitant]
     Active Substance: BRINZOLAMIDE
  4. EDARBI [Concomitant]
     Active Substance: AZILSARTAN KAMEDOXOMIL
  5. ASPIRIN (E.C.) [Concomitant]
     Active Substance: ASPIRIN
  6. PROAIR HFA [Concomitant]
     Active Substance: ALBUTEROL SULFATE
  7. LUMIGAN [Concomitant]
     Active Substance: BIMATOPROST
  8. DIPHENHYDRAMINE. [Concomitant]
     Active Substance: DIPHENHYDRAMINE
  9. EPINEPHRINE. [Concomitant]
     Active Substance: EPINEPHRINE
  10. MAGNESIUM [Concomitant]
     Active Substance: MAGNESIUM
  11. SILVER [Concomitant]
     Active Substance: SILVER
  12. MONTELUKAST [Concomitant]
     Active Substance: MONTELUKAST SODIUM
  13. CLARITIN [Concomitant]
     Active Substance: LORATADINE
  14. VITAMIN D3 [Concomitant]
     Active Substance: CHOLECALCIFEROL
  15. MUPIROCIN. [Concomitant]
     Active Substance: MUPIROCIN
  16. LIDOCAINE. [Concomitant]
     Active Substance: LIDOCAINE
  17. SPIRONOLACTONE. [Concomitant]
     Active Substance: SPIRONOLACTONE
  18. ALPRAZOLAM. [Concomitant]
     Active Substance: ALPRAZOLAM
  19. MILK THISTLE [SILYBUM MARIANUM] [Concomitant]
     Active Substance: DIETARY SUPPLEMENT\HERBALS\MILK THISTLE
  20. ALBUTEROL [SALBUTAMOL] [Concomitant]
     Active Substance: ALBUTEROL
  21. FLUTICASONE. [Concomitant]
     Active Substance: FLUTICASONE
  22. PANTOPRAZOLE [Concomitant]
     Active Substance: PANTOPRAZOLE
  23. GABAPENTIN. [Concomitant]
     Active Substance: GABAPENTIN
  24. CLONIDINE. [Concomitant]
     Active Substance: CLONIDINE
  25. RESTASIS [Concomitant]
     Active Substance: CYCLOSPORINE
  26. FUROSEMIDE. [Concomitant]
     Active Substance: FUROSEMIDE
  27. FOLIC ACID. [Concomitant]
     Active Substance: FOLIC ACID
  28. ACETAMINOPHEN. [Concomitant]
     Active Substance: ACETAMINOPHEN
  29. NORMAL SALINE [Concomitant]
     Active Substance: SODIUM CHLORIDE

REACTIONS (6)
  - Hospitalisation [Unknown]
  - Dizziness [Unknown]
  - Gingival disorder [Unknown]
  - Chills [Unknown]
  - Oral pain [Unknown]
  - Cystitis [Unknown]

NARRATIVE: CASE EVENT DATE: 20210618
